FAERS Safety Report 8026026-7 (Version None)
Quarter: 2012Q1

REPORT INFORMATION
  Report Type: 
  Country: None (occurrence: None)
  Receive Date: 20120105
  Receipt Date: 20110718
  Transmission Date: 20120608
  Serious: No
  Sender: FDA-Public Use
  Company Number: US-ABBOTT-11P-163-0840570-00

PATIENT
  Age: 52 Year
  Sex: Female

DRUGS (2)
  1. SYNTHROID [Suspect]
     Dosage: UNKNOWN
  2. SYNTHROID [Suspect]
     Indication: PRODUCT USED FOR UNKNOWN INDICATION
     Dates: start: 20060101

REACTIONS (5)
  - FATIGUE [None]
  - PARAESTHESIA [None]
  - PAIN IN EXTREMITY [None]
  - JOINT STIFFNESS [None]
  - OEDEMA PERIPHERAL [None]
